FAERS Safety Report 5281757-7 (Version None)
Quarter: 2007Q1

REPORT INFORMATION
  Report Type: 
  Country: None (occurrence: None)
  Receive Date: 20070330
  Receipt Date: 20070322
  Transmission Date: 20070707
  Serious: Yes (Life-Threatening)
  Sender: FDA-Public Use
  Company Number: FR-GLAXOSMITHKLINE-B0463057A

PATIENT
  Age: 3 Week
  Sex: Female
  Weight: 1 kg

DRUGS (3)
  1. RETROVIR [Suspect]
     Indication: ANTIVIRAL PROPHYLAXIS
     Dosage: 1.6MG TWICE PER DAY
     Route: 042
     Dates: start: 20070119, end: 20070126
  2. RETROVIR [Suspect]
     Dosage: 2MG TWICE PER DAY
     Route: 048
     Dates: start: 20070126, end: 20070208
  3. ANTIRETROVIRAL MEDICATIONS [Concomitant]

REACTIONS (2)
  - DRUG EXPOSURE DURING PREGNANCY [None]
  - NECROTISING ENTEROCOLITIS NEONATAL [None]
